FAERS Safety Report 5142976-3 (Version None)
Quarter: 2006Q4

REPORT INFORMATION
  Report Type: 
  Country: None (occurrence: None)
  Receive Date: 20061103
  Receipt Date: 20061020
  Transmission Date: 20070319
  Serious: Yes (Hospitalization)
  Sender: FDA-Public Use
  Company Number: US-JNJFOC-20061005158

PATIENT
  Sex: Female
  Weight: 113.4 kg

DRUGS (7)
  1. FENTANYL TRANSDERMAL SYSTEM [Suspect]
     Indication: RADICULAR PAIN
     Route: 062
  2. UNKNOWN DRUG [Concomitant]
     Indication: PHOSPHORUS METABOLISM DISORDER
     Dosage: TAKE WITH MEALS
     Route: 048
  3. RENAGEL [Concomitant]
     Indication: PHOSPHORUS METABOLISM DISORDER
     Dosage: TAKE WITH MEALS
     Route: 048
  4. RENAL CAPS [Concomitant]
     Route: 048
  5. BUMEX [Concomitant]
     Indication: DIURETIC THERAPY
     Route: 048
  6. DEMADEX [Concomitant]
     Indication: DIURETIC THERAPY
     Route: 048
  7. NEURONTIN [Concomitant]
     Indication: MUSCLE DISORDER
     Route: 048

REACTIONS (6)
  - APPLICATION SITE PRURITUS [None]
  - BLOOD PRESSURE DECREASED [None]
  - BODY TEMPERATURE INCREASED [None]
  - CONTUSION [None]
  - PLATELET COUNT DECREASED [None]
  - THROMBOSIS IN DEVICE [None]
